FAERS Safety Report 23546691 (Version 1)
Quarter: 2024Q1

REPORT INFORMATION
  Report Type: Report from Study
  Country: BR (occurrence: BR)
  Receive Date: 20240221
  Receipt Date: 20240221
  Transmission Date: 20240409
  Serious: Yes (Other)
  Sender: FDA-Public Use
  Company Number: BR-TAKEDA-2024TUS015298

PATIENT
  Age: 17 Year

DRUGS (1)
  1. ANTI-INHIBITOR COAGULANT COMPLEX [Suspect]
     Active Substance: ANTI-INHIBITOR COAGULANT COMPLEX
     Indication: Factor VIII deficiency
     Dosage: 4800 INTERNATIONAL UNIT, 2/WEEK
     Route: 065
     Dates: start: 201709, end: 202003

REACTIONS (2)
  - Therapy non-responder [Unknown]
  - Treatment failure [Unknown]
